FAERS Safety Report 5878211-8 (Version None)
Quarter: 2008Q3

REPORT INFORMATION
  Report Type: 
  Country: None (occurrence: None)
  Receive Date: 20080911
  Receipt Date: 20080910
  Transmission Date: 20090109
  Serious: Yes (Death, Disabling)
  Sender: FDA-Public Use
  Company Number: PHHY2008IT20724

PATIENT
  Sex: Female

DRUGS (2)
  1. AREDIA [Suspect]
  2. ZOMETA [Suspect]
     Dosage: UNK
     Dates: start: 20010101, end: 20050101

REACTIONS (4)
  - DEATH [None]
  - MASTICATION DISORDER [None]
  - OSTEONECROSIS [None]
  - SURGERY [None]
